FAERS Safety Report 10061730 (Version 1)
Quarter: 2014Q2

REPORT INFORMATION
  Report Type: Spontaneous
  Country: SG (occurrence: None)
  Receive Date: 20140403
  Receipt Date: 20140403
  Transmission Date: 20141212
  Serious: Yes (Hospitalization)
  Sender: FDA-Public Use
  Company Number: 2259544

PATIENT
  Age: 34 Year
  Sex: Female

DRUGS (7)
  1. FENTANYL CITRATE [Suspect]
     Indication: SPINAL ANAESTHESIA
     Route: 037
  2. MORPHINE SULPHATE [Suspect]
     Indication: SPINAL ANAESTHESIA
     Route: 037
  3. BUPIVACINE [Suspect]
     Indication: SPINAL ANAESTHESIA
     Route: 037
  4. OXYTOCIN [Suspect]
     Indication: PRODUCT USED FOR UNKNOWN INDICATION
     Route: 040
  5. PHENYLPHRINE [Concomitant]
  6. EPHEDRINE [Concomitant]
  7. IV SOLUTIONS [Concomitant]

REACTIONS (5)
  - Headache [None]
  - Procedural haemorrhage [None]
  - Nausea [None]
  - Subarachnoid haemorrhage [None]
  - Cerebral vasoconstriction [None]
